FAERS Safety Report 19431794 (Version 2)
Quarter: 2021Q3

REPORT INFORMATION
  Report Type: Spontaneous
  Country: US (occurrence: US)
  Receive Date: 20210617
  Receipt Date: 20210712
  Transmission Date: 20211014
  Serious: No
  Sender: FDA-Public Use
  Company Number: US-ORGANON-O2106USA001287

PATIENT
  Sex: Female
  Weight: 131.5 kg

DRUGS (1)
  1. NEXPLANON [Suspect]
     Active Substance: ETONOGESTREL
     Indication: CONTRACEPTION
     Dosage: 1 ROD (68 MILLIGRAM, EVERY 3 YEARS
     Route: 059
     Dates: start: 20190930, end: 20210406

REACTIONS (2)
  - Device breakage [Recovered/Resolved]
  - Vaginal haemorrhage [Unknown]
